FAERS Safety Report 6420083-7 (Version None)
Quarter: 2009Q4

REPORT INFORMATION
  Report Type: 
  Country: None (occurrence: None)
  Receive Date: 20091029
  Receipt Date: 20091021
  Transmission Date: 20100525
  Serious: Yes (Other)
  Sender: FDA-Public Use
  Company Number: US-PFIZER INC-2009275820

PATIENT

DRUGS (1)
  1. CHANTIX [Suspect]

REACTIONS (2)
  - OROPHARYNGEAL BLISTERING [None]
  - SWELLING FACE [None]
